FAERS Safety Report 19211471 (Version 7)
Quarter: 2023Q1

REPORT INFORMATION
  Report Type: Report from Study
  Country: PA (occurrence: PA)
  Receive Date: 20210504
  Receipt Date: 20230207
  Transmission Date: 20230417
  Serious: Yes (Hospitalization)
  Sender: FDA-Public Use
  Company Number: NVSC2021PA073223

PATIENT
  Age: 46 Year
  Sex: Female
  Weight: 80.726 kg

DRUGS (4)
  1. KISQALI [Suspect]
     Active Substance: RIBOCICLIB
     Indication: Breast cancer metastatic
     Dosage: 600 MG, QD
     Route: 048
     Dates: start: 20200401
  2. KISQALI [Suspect]
     Active Substance: RIBOCICLIB
     Indication: Metastases to lung
     Dosage: 3 DF (200 MG), QD
     Route: 048
     Dates: start: 20210323
  3. ANASTROZOLE [Suspect]
     Active Substance: ANASTROZOLE
     Indication: Breast cancer metastatic
     Dosage: 1 DF (1 MG), QD
     Route: 048
     Dates: start: 20210323
  4. ANASTROZOLE [Suspect]
     Active Substance: ANASTROZOLE
     Indication: Metastases to lung

REACTIONS (15)
  - Ill-defined disorder [Recovering/Resolving]
  - Neck pain [Recovering/Resolving]
  - Eating disorder [Recovered/Resolved]
  - Dysstasia [Recovered/Resolved]
  - Malaise [Unknown]
  - Vision blurred [Unknown]
  - Head discomfort [Recovering/Resolving]
  - Pain [Unknown]
  - Vomiting [Recovered/Resolved]
  - Headache [Not Recovered/Not Resolved]
  - Dyspepsia [Recovering/Resolving]
  - Wound complication [Unknown]
  - Spinal disorder [Unknown]
  - Wrong product administered [Unknown]
  - Abdominal pain upper [Unknown]

NARRATIVE: CASE EVENT DATE: 20210325
